FAERS Safety Report 7237761-2 (Version None)
Quarter: 2011Q1

REPORT INFORMATION
  Report Type: 
  Country: None (occurrence: None)
  Receive Date: 20110121
  Receipt Date: 20110119
  Transmission Date: 20110831
  Serious: Yes (Death)
  Sender: FDA-Public Use
  Company Number: PHHY2010US89534

PATIENT
  Sex: Male

DRUGS (2)
  1. LISINOPRIL [Concomitant]
  2. EXJADE [Suspect]
     Dosage: 500 MG, DAILY
     Route: 048

REACTIONS (1)
  - DEATH [None]
